FAERS Safety Report 12810196 (Version 1)
Quarter: 2016Q4

REPORT INFORMATION
  Report Type: Report from Study
  Country: US (occurrence: US)
  Receive Date: 20161005
  Receipt Date: 20161005
  Transmission Date: 20170207
  Serious: Yes (Hospitalization, Other)
  Sender: FDA-Public Use
  Company Number: US-GILEAD-2016-0222459

PATIENT
  Age: 82 Year
  Sex: Male

DRUGS (2)
  1. AMBRISENTAN [Suspect]
     Active Substance: AMBRISENTAN
     Indication: PRODUCT USED FOR UNKNOWN INDICATION
     Dosage: 10 MG, QD
     Route: 065
     Dates: start: 20120410
  2. WARFARIN [Concomitant]
     Active Substance: WARFARIN

REACTIONS (6)
  - Basal cell carcinoma [Unknown]
  - Blister [Recovered/Resolved]
  - Oedema [Recovered/Resolved]
  - Syncope [Unknown]
  - Fluid retention [Recovering/Resolving]
  - Dry skin [Unknown]

NARRATIVE: CASE EVENT DATE: 201609
